FAERS Safety Report 20884787 (Version 6)
Quarter: 2022Q3

REPORT INFORMATION
  Report Type: Spontaneous
  Country: JP (occurrence: JP)
  Receive Date: 20220527
  Receipt Date: 20220928
  Transmission Date: 20221027
  Serious: Yes (Hospitalization, Other)
  Sender: FDA-Public Use
  Company Number: JP-CHUGAI-2022015049

PATIENT
  Age: 64 Year
  Sex: Female

DRUGS (3)
  1. ROZLYTREK [Suspect]
     Active Substance: ENTRECTINIB
     Indication: Sarcoma
     Dosage: 600 MILLIGRAM, QD
     Route: 048
     Dates: start: 20220406
  2. ROZLYTREK [Suspect]
     Active Substance: ENTRECTINIB
     Indication: Ovarian cancer
     Route: 048
     Dates: start: 20220502, end: 2022
  3. ROZLYTREK [Suspect]
     Active Substance: ENTRECTINIB
     Route: 048
     Dates: start: 2022, end: 2022

REACTIONS (4)
  - Dizziness [Not Recovered/Not Resolved]
  - Dysarthria [Recovered/Resolved]
  - Altered state of consciousness [Unknown]
  - Blood creatinine increased [Unknown]

NARRATIVE: CASE EVENT DATE: 20220101
